FAERS Safety Report 8612898-1 (Version None)
Quarter: 2012Q3

REPORT INFORMATION
  Report Type: 
  Country: None (occurrence: None)
  Receive Date: 20120822
  Receipt Date: 20111103
  Transmission Date: 20120928
  Serious: No
  Sender: FDA-Public Use
  Company Number: US-ALLERGAN-1114487US

PATIENT
  Age: 61 Year
  Sex: Female

DRUGS (1)
  1. SANCTURA XR [Suspect]
     Indication: BLADDER CATHETER TEMPORARY
     Dosage: 60 MG, SINGLE
     Route: 048
     Dates: start: 20111102

REACTIONS (3)
  - NAUSEA [None]
  - VOMITING [None]
  - HEADACHE [None]
